FAERS Safety Report 18376695 (Version 2)
Quarter: 2020Q4

REPORT INFORMATION
  Report Type: Spontaneous
  Country: BR (occurrence: BR)
  Receive Date: 20201013
  Receipt Date: 20201020
  Transmission Date: 20210114
  Serious: Yes (Other)
  Sender: FDA-Public Use
  Company Number: BR-JNJFOC-20201008117

PATIENT
  Age: 82 Year
  Sex: Male

DRUGS (3)
  1. XARELTO [Suspect]
     Active Substance: RIVAROXABAN
     Indication: PRODUCT USED FOR UNKNOWN INDICATION
     Dosage: 20 MG, BID
     Route: 048
  2. TICAGRELOR. [Concomitant]
     Active Substance: TICAGRELOR
     Dosage: 99 MG, BID
  3. ACETYLSALICYLIC ACID [Suspect]
     Active Substance: ASPIRIN
     Dosage: 100 MG, QD
     Route: 048

REACTIONS (4)
  - Gait disturbance [Unknown]
  - Overdose [Unknown]
  - Speech disorder [Unknown]
  - Product dispensing error [Unknown]
